FAERS Safety Report 19603587 (Version 1)
Quarter: 2021Q3

REPORT INFORMATION
  Report Type: Spontaneous
  Country: US (occurrence: US)
  Receive Date: 20210723
  Receipt Date: 20210723
  Transmission Date: 20211014
  Serious: Yes (Other)
  Sender: FDA-Public Use
  Company Number: US-MYLANLABS-2021M1044542

PATIENT
  Sex: Female

DRUGS (12)
  1. MONTELUKAST [Suspect]
     Active Substance: MONTELUKAST SODIUM
     Indication: OBLITERATIVE BRONCHIOLITIS
  2. BUDESONIDE W/FORMOTEROL [Suspect]
     Active Substance: BUDESONIDE\FORMOTEROL
     Indication: OBLITERATIVE BRONCHIOLITIS
  3. FLUTICASONE. [Suspect]
     Active Substance: FLUTICASONE
     Indication: SJOGREN^S SYNDROME
     Route: 045
  4. MULTIVITAMIN                       /07504101/ [Suspect]
     Active Substance: VITAMINS
     Indication: OBLITERATIVE BRONCHIOLITIS
  5. FLUTICASONE. [Suspect]
     Active Substance: FLUTICASONE
     Indication: OBLITERATIVE BRONCHIOLITIS
  6. MONTELUKAST [Suspect]
     Active Substance: MONTELUKAST SODIUM
     Indication: SJOGREN^S SYNDROME
     Route: 065
  7. TURMERIC                           /01079601/ [Suspect]
     Active Substance: HERBALS\TURMERIC
     Indication: SJOGREN^S SYNDROME
     Dosage: UNK
     Route: 065
  8. TURMERIC                           /01079601/ [Suspect]
     Active Substance: HERBALS\TURMERIC
     Indication: OBLITERATIVE BRONCHIOLITIS
  9. RITUXIMAB. [Concomitant]
     Active Substance: RITUXIMAB
     Indication: OBLITERATIVE BRONCHIOLITIS
  10. MULTIVITAMIN                       /07504101/ [Suspect]
     Active Substance: VITAMINS
     Indication: SJOGREN^S SYNDROME
     Route: 065
  11. RITUXIMAB. [Concomitant]
     Active Substance: RITUXIMAB
     Indication: SJOGREN^S SYNDROME
     Dosage: 1000 MILLIGRAM, BIWEEKLY
  12. BUDESONIDE W/FORMOTEROL [Suspect]
     Active Substance: BUDESONIDE\FORMOTEROL
     Indication: SJOGREN^S SYNDROME
     Route: 055

REACTIONS (1)
  - Drug ineffective [Unknown]
